FAERS Safety Report 10743388 (Version 2)
Quarter: 2021Q3

REPORT INFORMATION
  Report Type: Spontaneous
  Country: DE (occurrence: DE)
  Receive Date: 20150128
  Receipt Date: 20210817
  Transmission Date: 20211014
  Serious: Yes (Congenital Anomaly, Other)
  Sender: FDA-Public Use
  Company Number: DE-AUROBINDO-AUR-APL-2015-00485

PATIENT
  Age: 1 Day
  Sex: Male
  Weight: 2.86 kg

DRUGS (3)
  1. AMITRIPTYLINE [Suspect]
     Active Substance: AMITRIPTYLINE
     Indication: DEPRESSION
     Dosage: 10 MG, ONCE A DAY
     Route: 064
     Dates: start: 20130907, end: 20140608
  2. ASPIRIN. [Concomitant]
     Active Substance: ASPIRIN
     Indication: ULTRASOUND DOPPLER ABNORMAL
     Dosage: 100 MG, ONCE A DAY
     Route: 064
     Dates: start: 20140130, end: 20140513
  3. OLANZAPINE 2.5MG [Suspect]
     Active Substance: OLANZAPINE
     Indication: SLEEP DISORDER
     Dosage: 2.5 MG, ONCE A DAY
     Route: 064

REACTIONS (3)
  - Small for dates baby [Unknown]
  - Foetal exposure during pregnancy [Unknown]
  - Cleft lip [Unknown]

NARRATIVE: CASE EVENT DATE: 20140608
